FAERS Safety Report 6366564-6 (Version None)
Quarter: 2009Q3

REPORT INFORMATION
  Report Type: 
  Country: None (occurrence: None)
  Receive Date: 20090921
  Receipt Date: 20090910
  Transmission Date: 20100115
  Serious: Yes (Hospitalization)
  Sender: FDA-Public Use
  Company Number: GB-JNJFOC-20090804143

PATIENT
  Age: 78 Year
  Sex: Female
  Weight: 70 kg

DRUGS (10)
  1. REMICADE [Suspect]
     Route: 042
     Dates: start: 20040707, end: 20090706
  2. REMICADE [Suspect]
     Indication: RHEUMATOID ARTHRITIS
     Route: 042
     Dates: start: 20040707, end: 20090706
  3. METHOTREXATE [Concomitant]
  4. PREDNISOLONE [Concomitant]
  5. ARTHROTEC [Concomitant]
  6. BENDROFLUAZIDE [Concomitant]
  7. ACETAMINOPHEN WITH PROPOXYPHENE HCL TAB [Concomitant]
  8. FOLIC ACID [Concomitant]
  9. FOSAMAX [Concomitant]
  10. GLUCOSAMINE [Concomitant]

REACTIONS (3)
  - HEPATIC FUNCTION ABNORMAL [None]
  - KNEE ARTHROPLASTY [None]
  - RENAL FAILURE [None]
